FAERS Safety Report 9354833 (Version 1)
Quarter: 2013Q2

REPORT INFORMATION
  Report Type: Spontaneous
  Country: US (occurrence: None)
  Receive Date: 20130618
  Receipt Date: 20130618
  Transmission Date: 20140414
  Serious: Yes (Death, Hospitalization)
  Sender: FDA-Public Use
  Company Number: None

PATIENT
  Age: 74 Year
  Sex: Male
  Weight: 79.4 kg

DRUGS (2)
  1. CISPLATIN [Suspect]
     Dates: end: 20130515
  2. VINORELBINE TARTRATE [Suspect]
     Dates: end: 20130522

REACTIONS (4)
  - Sinus tachycardia [None]
  - Constipation [None]
  - Fatigue [None]
  - Cardiogenic shock [None]
